FAERS Safety Report 5517114-5 (Version None)
Quarter: 2007Q4

REPORT INFORMATION
  Report Type: 
  Country: None (occurrence: None)
  Receive Date: 20071114
  Receipt Date: 20071109
  Transmission Date: 20080405
  Serious: Yes (Hospitalization)
  Sender: FDA-Public Use
  Company Number: A0693624A

PATIENT
  Age: 53 Year
  Sex: Female

DRUGS (13)
  1. COREG [Suspect]
     Indication: LEFT VENTRICULAR DYSFUNCTION
     Dosage: 6.25MG TWICE PER DAY
     Route: 048
     Dates: start: 20060601, end: 20071108
  2. COREG CR [Suspect]
     Indication: LEFT VENTRICULAR DYSFUNCTION
     Dosage: 20MG PER DAY
     Route: 048
     Dates: start: 20071108
  3. NORVASC [Concomitant]
  4. LISINOPRIL [Concomitant]
  5. ALDACTONE [Concomitant]
  6. TOPAMAX [Concomitant]
  7. LIPITOR [Concomitant]
  8. CLARITIN [Concomitant]
  9. OMEPRAZOLE [Concomitant]
  10. ASPIRIN [Concomitant]
  11. VITAMIN [Concomitant]
  12. COENZYME Q10 [Concomitant]
  13. FISH OIL [Concomitant]

REACTIONS (1)
  - CHEST DISCOMFORT [None]
